FAERS Safety Report 6335666-2 (Version None)
Quarter: 2009Q3

REPORT INFORMATION
  Report Type: 
  Country: None (occurrence: None)
  Receive Date: 20090831
  Receipt Date: 20090821
  Transmission Date: 20100115
  Serious: Yes (Other)
  Sender: FDA-Public Use
  Company Number: GB-ABBOTT-09P-167-0583749-00

PATIENT
  Sex: Female
  Weight: 56 kg

DRUGS (3)
  1. HUMIRA [Suspect]
     Indication: CROHN'S DISEASE
     Route: 058
     Dates: start: 20090303, end: 20090407
  2. AZATHIOPRINE [Concomitant]
     Indication: CROHN'S DISEASE
     Route: 048
     Dates: start: 20080315, end: 20080318
  3. INFLIXIMAB [Concomitant]
     Indication: CROHN'S DISEASE
     Dates: start: 20090417, end: 20090514

REACTIONS (1)
  - LIVER FUNCTION TEST ABNORMAL [None]
